FAERS Safety Report 10173779 (Version 1)
Quarter: 2014Q2

REPORT INFORMATION
  Report Type: Spontaneous
  Country: US (occurrence: None)
  Receive Date: 20140425
  Receipt Date: 20140425
  Transmission Date: 20141212
  Serious: No
  Sender: FDA-Public Use
  Company Number: 1348088

PATIENT
  Sex: Male

DRUGS (1)
  1. ZELBORAF [Suspect]
     Indication: MALIGNANT MELANOMA
     Dosage: 960 UNIT NOT REPORTED, 2 IN 1 D
     Route: 048
     Dates: start: 20110909

REACTIONS (5)
  - Liver disorder [None]
  - Photosensitivity reaction [None]
  - Arthralgia [None]
  - Myalgia [None]
  - Brain neoplasm [None]
